FAERS Safety Report 13273128 (Version 1)
Quarter: 2017Q1

REPORT INFORMATION
  Report Type: Spontaneous
  Country: US (occurrence: US)
  Receive Date: 20170227
  Receipt Date: 20170227
  Transmission Date: 20170428
  Serious: No
  Sender: FDA-Public Use
  Company Number: US-LUNDBECK-DKLU2026001

PATIENT
  Sex: Female

DRUGS (1)
  1. NORTHERA [Suspect]
     Active Substance: DROXIDOPA
     Indication: ARRHYTHMIA
     Dosage: 48 HOUR TITRATION
     Route: 048
     Dates: start: 20170117

REACTIONS (4)
  - Insomnia [Unknown]
  - Asthenia [Unknown]
  - Night sweats [Unknown]
  - Fatigue [Unknown]
